FAERS Safety Report 17742320 (Version 3)
Quarter: 2023Q4

REPORT INFORMATION
  Report Type: Spontaneous
  Country: US (occurrence: US)
  Receive Date: 20200505
  Receipt Date: 20231202
  Transmission Date: 20240109
  Serious: Yes (Other)
  Sender: FDA-Public Use
  Company Number: US-BAYER-2020-071514

PATIENT
  Sex: Female
  Weight: 66.68 kg

DRUGS (2)
  1. AVELOX [Suspect]
     Active Substance: MOXIFLOXACIN HYDROCHLORIDE
  2. NORVASC [Concomitant]
     Active Substance: AMLODIPINE BESYLATE
     Indication: Hypertensive crisis
     Dosage: 10 MG, QD
     Route: 048
     Dates: start: 2004

REACTIONS (1)
  - Myocardial infarction [None]
